FAERS Safety Report 6615832-9 (Version None)
Quarter: 2010Q1

REPORT INFORMATION
  Report Type: 
  Country: None (occurrence: None)
  Receive Date: 20100305
  Receipt Date: 20100223
  Transmission Date: 20100710
  Serious: Yes (Hospitalization, Other)
  Sender: FDA-Public Use
  Company Number: FR-GILEAD-2009-0024260

PATIENT
  Sex: Male
  Weight: 85 kg

DRUGS (9)
  1. VIREAD [Suspect]
     Indication: HIV INFECTION
  2. TRUVADA [Suspect]
     Indication: HIV INFECTION
  3. TRIATEC [Concomitant]
     Indication: HYPERTENSION
  4. KALETRA [Concomitant]
  5. PHOPHORE [Concomitant]
  6. KIVEXA [Concomitant]
  7. ZELITREX [Concomitant]
  8. OSTRAM D3 [Concomitant]
  9. LIPANTHYL [Concomitant]

REACTIONS (4)
  - HYPOPHOSPHATAEMIA [None]
  - OSTEOPOROSIS [None]
  - RENAL DISORDER [None]
  - RENAL TUBULAR DISORDER [None]
